FAERS Safety Report 6051565-8 (Version None)
Quarter: 2009Q1

REPORT INFORMATION
  Report Type: 
  Country: None (occurrence: None)
  Receive Date: 20090126
  Receipt Date: 20090116
  Transmission Date: 20090719
  Serious: Yes (Hospitalization)
  Sender: FDA-Public Use
  Company Number: B0554522A

PATIENT
  Age: 83 Year
  Sex: Female

DRUGS (10)
  1. ARIXTRA [Suspect]
     Indication: THROMBOSIS PROPHYLAXIS
     Dosage: 7.5MG PER DAY
     Route: 058
     Dates: start: 20081001, end: 20081015
  2. LOXEN [Concomitant]
     Route: 065
  3. DIGOXIN [Concomitant]
     Route: 065
  4. CORGARD [Concomitant]
     Route: 065
  5. XANAX [Concomitant]
     Route: 065
  6. DIFFU K [Concomitant]
     Route: 065
  7. COZAAR [Concomitant]
     Route: 065
  8. NEXIUM [Concomitant]
     Route: 065
  9. ACETAMINOPHEN [Concomitant]
     Route: 065
  10. AERIUS [Concomitant]
     Route: 065

REACTIONS (4)
  - ISCHAEMIC STROKE [None]
  - MOTOR DYSFUNCTION [None]
  - PARAESTHESIA [None]
  - QUADRIPLEGIA [None]
